FAERS Safety Report 9595419 (Version 1)
Quarter: 2013Q3

REPORT INFORMATION
  Report Type: Spontaneous
  Country: US (occurrence: None)
  Receive Date: 20130927
  Receipt Date: 20130927
  Transmission Date: 20140515
  Serious: Yes (Other)
  Sender: FDA-Public Use
  Company Number: CABO-13002941

PATIENT
  Age: 72 Year
  Sex: Male

DRUGS (6)
  1. COMETRIQ (CABOZANTINIB) CAPSULE [Suspect]
     Indication: PROSTATE CANCER
     Route: 048
     Dates: start: 20130622, end: 2013
  2. EXTEVEA [Concomitant]
  3. HYDROCHLOROTHIAZIDE [Concomitant]
  4. CALCIUM [Concomitant]
  5. MAGNESIUM [Concomitant]
  6. POTASSIUM [Concomitant]

REACTIONS (9)
  - Balance disorder [None]
  - Fall [None]
  - Gait disturbance [None]
  - Dizziness [None]
  - Fatigue [None]
  - Dysphonia [None]
  - Stomatitis [None]
  - Muscle spasms [None]
  - Pain in jaw [None]
